FAERS Safety Report 21312854 (Version 1)
Quarter: 2022Q3

REPORT INFORMATION
  Report Type: Spontaneous
  Country: None (occurrence: FR)
  Receive Date: 20220909
  Receipt Date: 20220909
  Transmission Date: 20221027
  Serious: Yes (Death, Other)
  Sender: FDA-Public Use
  Company Number: FR-B.Braun Medical Inc.-2132711

PATIENT
  Age: 77 Year
  Sex: Female

DRUGS (15)
  1. ACETAMINOPHEN [Suspect]
     Active Substance: ACETAMINOPHEN
  2. COMIRNATY [Suspect]
     Active Substance: TOZINAMERAN
  3. MORPHINE SULFATE [Suspect]
     Active Substance: MORPHINE SULFATE
  4. FUROSEMIDE [Suspect]
     Active Substance: FUROSEMIDE
  5. BISOPROLOL [Suspect]
     Active Substance: BISOPROLOL
  6. LOVENOX [Suspect]
     Active Substance: ENOXAPARIN SODIUM
  7. LIPTRUZET [Suspect]
     Active Substance: ATORVASTATIN CALCIUM\EZETIMIBE
  8. BUSPIRONE [Suspect]
     Active Substance: BUSPIRONE HYDROCHLORIDE
  9. FENTANYL [Suspect]
     Active Substance: FENTANYL
  10. POTASSIUM CHLORIDE [Suspect]
     Active Substance: POTASSIUM CHLORIDE
  11. PHLOROGLUCINOL [Suspect]
     Active Substance: PHLOROGLUCINOL
  12. RISEDRONATE SODIUM [Suspect]
     Active Substance: RISEDRONATE SODIUM
  13. PRIMPERAN [Suspect]
     Active Substance: METOCLOPRAMIDE HYDROCHLORIDE
  14. POLYETHYLENE GLYCOLS [Suspect]
     Active Substance: POLYETHYLENE GLYCOLS
  15. CORDARONE [Suspect]
     Active Substance: AMIODARONE HYDROCHLORIDE

REACTIONS (1)
  - Cardio-respiratory arrest [Fatal]
